FAERS Safety Report 13909087 (Version 1)
Quarter: 2017Q3

REPORT INFORMATION
  Report Type: Spontaneous
  Country: CA (occurrence: CA)
  Receive Date: 20170828
  Receipt Date: 20170828
  Transmission Date: 20171127
  Serious: Yes (Other)
  Sender: FDA-Public Use
  Company Number: CA-ASTRAZENECA-2017SE86551

PATIENT
  Age: 58 Year
  Sex: Female

DRUGS (1)
  1. SYMBICORT [Suspect]
     Active Substance: BUDESONIDE\FORMOTEROL FUMARATE DIHYDRATE
     Dosage: 200 UG, UNKNOWN FREQUENCY UNKNOWN
     Route: 055
     Dates: start: 2008

REACTIONS (2)
  - Coeliac disease [Unknown]
  - Abdominal discomfort [Unknown]
